FAERS Safety Report 22762584 (Version 3)
Quarter: 2023Q4

REPORT INFORMATION
  Report Type: Spontaneous
  Country: US (occurrence: US)
  Receive Date: 20230728
  Receipt Date: 20231116
  Transmission Date: 20240109
  Serious: Yes (Death, Other)
  Sender: FDA-Public Use
  Company Number: US-PFIZER INC-202300261685

PATIENT
  Age: 80 Year
  Sex: Male
  Weight: 81.19 kg

DRUGS (15)
  1. VYNDAMAX [Suspect]
     Active Substance: TAFAMIDIS
     Indication: Cardiac amyloidosis
     Dosage: 61 MG, 1X/DAY
     Route: 048
  2. ACYCLOVIR [Concomitant]
     Active Substance: ACYCLOVIR
     Indication: Leukaemia
     Dosage: 800 MG, 2X/DAY (TWICE A DAY, ONCE IN THE MORNING AND ONCE AT NIGHT)
     Route: 048
  3. ALLOPURINOL [Concomitant]
     Active Substance: ALLOPURINOL
     Indication: Myeloid leukaemia
     Dosage: 300 MG, 1X/DAY (ONCE IN THE MORNING)
     Route: 048
  4. DOCUSATE SODIUM [Concomitant]
     Active Substance: DOCUSATE SODIUM
     Indication: Faeces soft
     Dosage: 100 MG, 2X/DAY (ONE IN THE MORNING AND ONE AT NIGHT)
     Route: 048
  5. JARDIANCE [Concomitant]
     Active Substance: EMPAGLIFLOZIN
     Indication: Type 2 diabetes mellitus
     Dosage: 25 MG, 1X/DAY (ONE TABLET IN THE MORNING)
     Route: 048
  6. JARDIANCE [Concomitant]
     Active Substance: EMPAGLIFLOZIN
     Indication: Cardiac disorder
  7. JARDIANCE [Concomitant]
     Active Substance: EMPAGLIFLOZIN
     Indication: Chronic kidney disease
  8. FUROSEMIDE [Concomitant]
     Active Substance: FUROSEMIDE
     Indication: Peripheral swelling
     Dosage: 20 MG, DAILY (TAKEN IT IN THE MORNING)
     Route: 048
  9. LEVOFLOXACIN [Concomitant]
     Active Substance: LEVOFLOXACIN
     Indication: Myeloid leukaemia
     Dosage: 500 MG, DAILY (EVERY MORNING)
     Route: 048
  10. XARELTO [Concomitant]
     Active Substance: RIVAROXABAN
     Indication: Vomiting
     Dosage: 20 MG, AS NEEDED (ORALLY EVERY MORNING AS NEEDED WITH FOOD)
     Route: 048
  11. SPIRONOLACTONE [Concomitant]
     Active Substance: SPIRONOLACTONE
     Dosage: 25 MG, DAILY (EVERY MORNING)
     Route: 048
  12. VORICONAZOLE [Concomitant]
     Active Substance: VORICONAZOLE
     Indication: Myeloid leukaemia
     Dosage: 200 MG, 2X/DAY (ONE IN MORNING ONE IN NIGHT)
     Route: 048
  13. DIGOXIN [Concomitant]
     Active Substance: DIGOXIN
     Indication: Peripheral swelling
     Dosage: 125 UG, 1X/DAY (ONCE IN THE MORNING)
     Route: 048
  14. OMEPRAZOLE [Concomitant]
     Active Substance: OMEPRAZOLE
     Indication: Myeloid leukaemia
     Dosage: 20 MG, 1X/DAY (ONE IN THE MORNING ALL BY ITSELF NO FOOD)
     Route: 048
  15. PROCHLORPERAZINE [Concomitant]
     Active Substance: PROCHLORPERAZINE
     Indication: Abdominal discomfort
     Dosage: 5 MG, AS NEEDED
     Route: 048

REACTIONS (4)
  - Death [Fatal]
  - Cardiac failure congestive [Unknown]
  - Leukaemia [Unknown]
  - Memory impairment [Unknown]
